FAERS Safety Report 9005643 (Version 2)
Quarter: 2013Q1

REPORT INFORMATION
  Report Type: Spontaneous
  Country: US (occurrence: US)
  Receive Date: 20130109
  Receipt Date: 20130122
  Transmission Date: 20140127
  Serious: Yes (Death, Hospitalization, Other)
  Sender: FDA-Public Use
  Company Number: US-PFIZER INC-2013005762

PATIENT
  Age: 35 Year
  Sex: Female

DRUGS (6)
  1. VENLAFAXINE HYDROCHLORIDE [Suspect]
     Dosage: UNK
     Route: 048
  2. HYDROXYZINE PAMOATE [Suspect]
     Dosage: UNK
     Route: 048
  3. ACETAMINOPHEN / HYDROCODONE [Suspect]
     Dosage: UNK
     Route: 048
  4. MEPROBAMATE [Suspect]
     Dosage: UNK
     Route: 048
  5. PROMETHAZINE [Suspect]
     Dosage: UNK
     Route: 048
  6. TOPIRAMATE [Suspect]
     Dosage: UNK
     Route: 048

REACTIONS (3)
  - Completed suicide [Fatal]
  - Cardiac arrest [Fatal]
  - Respiratory arrest [Fatal]
